FAERS Safety Report 12712184 (Version 2)
Quarter: 2016Q3

REPORT INFORMATION
  Report Type: Spontaneous
  Country: US (occurrence: US)
  Receive Date: 20160902
  Receipt Date: 20160923
  Transmission Date: 20161109
  Serious: Yes (Other)
  Sender: FDA-Public Use
  Company Number: US-WEST-WARD PHARMACEUTICALS CORP.-US-H14001-16-01694

PATIENT
  Age: 55 Year
  Sex: Female

DRUGS (1)
  1. PREDNISONE. [Suspect]
     Active Substance: PREDNISONE
     Indication: RHEUMATOID ARTHRITIS
     Route: 048

REACTIONS (18)
  - Fungal skin infection [Not Recovered/Not Resolved]
  - Tooth disorder [Not Recovered/Not Resolved]
  - Hiatus hernia [Unknown]
  - Haemoglobin decreased [Unknown]
  - Palpitations [Not Recovered/Not Resolved]
  - Condition aggravated [Not Recovered/Not Resolved]
  - Oral candidiasis [Unknown]
  - Hyperhidrosis [Unknown]
  - Adrenal insufficiency [Unknown]
  - Blood pressure abnormal [Not Recovered/Not Resolved]
  - Oesophageal haemorrhage [Unknown]
  - Tongue disorder [Not Recovered/Not Resolved]
  - Skin atrophy [Not Recovered/Not Resolved]
  - Laceration [Not Recovered/Not Resolved]
  - Erosive oesophagitis [Unknown]
  - Bone density decreased [Unknown]
  - Gingival disorder [Not Recovered/Not Resolved]
  - Rash [Not Recovered/Not Resolved]

NARRATIVE: CASE EVENT DATE: 2016
